FAERS Safety Report 21569697 (Version 1)
Quarter: 2022Q4

REPORT INFORMATION
  Report Type: Spontaneous
  Country: CN (occurrence: None)
  Receive Date: 20221109
  Receipt Date: 20221109
  Transmission Date: 20230112
  Serious: Yes (Other)
  Sender: FDA-Public Use
  Company Number: CN-ROCHE-3214171

PATIENT
  Age: 81 Year
  Sex: Female
  Weight: 54 kg

DRUGS (3)
  1. GAZYVA [Suspect]
     Active Substance: OBINUTUZUMAB
     Indication: Thrombocytopenia
     Route: 042
     Dates: start: 20221024, end: 20221024
  2. SODIUM CHLORIDE [Concomitant]
     Active Substance: SODIUM CHLORIDE
     Route: 041
     Dates: start: 20221024, end: 20221024
  3. DESLANOSIDE [Concomitant]
     Active Substance: DESLANOSIDE

REACTIONS (3)
  - Blood pressure decreased [Recovered/Resolved]
  - Atrial fibrillation [Recovered/Resolved]
  - Off label use [Unknown]

NARRATIVE: CASE EVENT DATE: 20221024
